FAERS Safety Report 7187293-5 (Version None)
Quarter: 2010Q4

REPORT INFORMATION
  Report Type: 
  Country: None (occurrence: None)
  Receive Date: 20101222
  Receipt Date: 20101222
  Transmission Date: 20110411
  Serious: Yes (Death, Hospitalization)
  Sender: FDA-Public Use
  Company Number: ES-ABBOTT-10P-144-0693171-00

PATIENT
  Sex: Female

DRUGS (4)
  1. KALETRA [Suspect]
     Indication: HEPATITIS C
     Route: 048
  2. KALETRA [Suspect]
     Indication: HIV INFECTION
  3. PEGINTERFERON ALFA-2B [Concomitant]
     Indication: HIV INFECTION
     Route: 058
     Dates: start: 20100215, end: 20100922
  4. PEGINTERFERON ALFA-2B [Concomitant]
     Indication: HEPATITIS C

REACTIONS (4)
  - ASTHENIA [None]
  - DYSPNOEA [None]
  - OEDEMA [None]
  - PULMONARY HYPERTENSION [None]
